FAERS Safety Report 5367539-6 (Version None)
Quarter: 2007Q2

REPORT INFORMATION
  Report Type: 
  Country: None (occurrence: None)
  Receive Date: 20070622
  Receipt Date: 20070102
  Transmission Date: 20071010
  Serious: No
  Sender: FDA-Public Use
  Company Number: US-ASTRAZENECA-2007UW00076

PATIENT
  Sex: Male

DRUGS (1)
  1. PULMICORT [Suspect]
     Indication: DYSPNOEA
     Route: 055
     Dates: start: 20060901

REACTIONS (2)
  - DEVICE FAILURE [None]
  - DRUG INEFFECTIVE [None]
